FAERS Safety Report 4873174-6 (Version None)
Quarter: 2005Q4

REPORT INFORMATION
  Report Type: 
  Country: None (occurrence: None)
  Receive Date: 20051201
  Receipt Date: 20050715
  Transmission Date: 20060501
  Serious: No
  Sender: FDA-Public Use
  Company Number: 2005PV000409

PATIENT
  Age: 70 Year
  Sex: Female
  Weight: 98.4306 kg

DRUGS (13)
  1. BYETTA [Suspect]
     Indication: DIABETES MELLITUS NON-INSULIN-DEPENDENT
     Dosage: 5 MCG;BID;SC
     Route: 058
     Dates: start: 20050715
  2. ASPIRIN [Suspect]
     Indication: EMBOLISM
     Dosage: 81 MG;QD;PO
     Route: 048
  3. POLY-IRON [Concomitant]
  4. GLUCOSAMINE W/CHONDROITIN SULFATES [Concomitant]
  5. MULTIVITAMIN [Concomitant]
  6. CALCIUM GLUCONATE [Concomitant]
  7. EQUATE DAYHIST ALLERGY [Concomitant]
  8. ACTOS [Concomitant]
  9. ENAVELEX [Concomitant]
  10. CELEBREX [Concomitant]
  11. HYDROCHLOROTHIAZIDE/LISINPRIL [Concomitant]
  12. CRESTOR [Concomitant]
  13. NASONEX [Concomitant]

REACTIONS (1)
  - INJECTION SITE HAEMORRHAGE [None]
